FAERS Safety Report 25366748 (Version 1)
Quarter: 2025Q2

REPORT INFORMATION
  Report Type: Spontaneous
  Country: CN (occurrence: CN)
  Receive Date: 20250528
  Receipt Date: 20250528
  Transmission Date: 20250717
  Serious: Yes (Hospitalization, Other)
  Sender: BAXTER
  Company Number: None

PATIENT
  Age: 42 Year
  Sex: Female

DRUGS (4)
  1. CYCLOPHOSPHAMIDE [Suspect]
     Active Substance: CYCLOPHOSPHAMIDE
     Indication: Breast cancer female
     Dosage: 600 MG, QD
     Route: 041
     Dates: start: 20250428, end: 20250428
  2. DEXTROSE MONOHYDRATE [Suspect]
     Active Substance: DEXTROSE MONOHYDRATE
     Indication: Medication dilution
     Dosage: 250 ML, QD, ONCE DAILY WITH DOXORUBICIN HYDROCHLORIDE LIPOSOME
     Route: 041
     Dates: start: 20250428, end: 20250428
  3. DOXORUBICIN HYDROCHLORIDE [Suspect]
     Active Substance: DOXORUBICIN HYDROCHLORIDE
     Indication: Breast cancer female
     Dosage: 40 MG, QD
     Route: 041
     Dates: start: 20250428, end: 20250428
  4. SODIUM CHLORIDE [Suspect]
     Active Substance: SODIUM CHLORIDE
     Indication: Medication dilution
     Dosage: 500 ML, QD, (DACHONG-MIDDLE CHOICE) WITH CYCLOPHOSPHAMIDE
     Route: 041
     Dates: start: 20250428, end: 20250428

REACTIONS (2)
  - Myelosuppression [Recovering/Resolving]
  - Cytopenia [Unknown]

NARRATIVE: CASE EVENT DATE: 20250520
